FAERS Safety Report 17263217 (Version 3)
Quarter: 2021Q4

REPORT INFORMATION
  Report Type: Report from Study
  Country: JP (occurrence: JP)
  Receive Date: 20200113
  Receipt Date: 20211228
  Transmission Date: 20220303
  Serious: Yes (Hospitalization, Other)
  Sender: FDA-Public Use
  Company Number: JP-CLINIGEN GROUP PLC/ CLINIGEN HEALTHCARE LTD-JP-CLGN-19-00658

PATIENT
  Age: 63 Year
  Sex: Male

DRUGS (12)
  1. DEXRAZOXANE [Suspect]
     Active Substance: DEXRAZOXANE
     Indication: Infusion site extravasation
     Route: 041
     Dates: start: 20191028, end: 20191030
  2. DOXORUBICIN HYDROCHLORIDE [Suspect]
     Active Substance: DOXORUBICIN HYDROCHLORIDE
     Indication: Lymphoma
     Route: 042
     Dates: start: 20191026, end: 20191028
  3. DOXORUBICIN HYDROCHLORIDE [Suspect]
     Active Substance: DOXORUBICIN HYDROCHLORIDE
     Route: 042
     Dates: start: 20191113, end: 20191116
  4. ONCOVIN [Suspect]
     Active Substance: VINCRISTINE SULFATE
     Indication: Lymphoma
     Route: 042
     Dates: start: 20191026, end: 20191028
  5. ONCOVIN [Suspect]
     Active Substance: VINCRISTINE SULFATE
     Route: 042
     Dates: start: 20191113, end: 20191116
  6. ETOPOSIDE [Suspect]
     Active Substance: ETOPOSIDE
     Indication: Lymphoma
     Route: 042
     Dates: start: 20191026, end: 20191028
  7. ETOPOSIDE [Suspect]
     Active Substance: ETOPOSIDE
     Route: 042
     Dates: start: 20191113, end: 20191116
  8. CYCLOPHOSPHAMIDE [Suspect]
     Active Substance: CYCLOPHOSPHAMIDE
     Indication: Product used for unknown indication
     Route: 042
     Dates: start: 20191117, end: 20191117
  9. PREDNISOLONE ACETATE [Concomitant]
     Active Substance: PREDNISOLONE ACETATE
     Indication: Product used for unknown indication
     Dates: start: 20191113, end: 20191117
  10. RITUXIMAB [Concomitant]
     Active Substance: RITUXIMAB
     Indication: Product used for unknown indication
     Route: 041
     Dates: start: 20191120, end: 20191120
  11. FUROSEMIDE [Concomitant]
     Active Substance: FUROSEMIDE
     Indication: Product used for unknown indication
     Dates: start: 20191115, end: 20191119
  12. CEFEPIME [Concomitant]
     Active Substance: CEFEPIME HYDROCHLORIDE
     Indication: Febrile neutropenia
     Route: 042
     Dates: start: 20191124, end: 20191126

REACTIONS (5)
  - Urinary retention [Recovered/Resolved]
  - Myelosuppression [Recovered/Resolved]
  - Constipation [Recovered/Resolved]
  - Nausea [Recovered/Resolved]
  - Alanine aminotransferase increased [Unknown]

NARRATIVE: CASE EVENT DATE: 20191031
